FAERS Safety Report 9160142 (Version 1)
Quarter: 2013Q1

REPORT INFORMATION
  Report Type: Spontaneous
  Country: US (occurrence: US)
  Receive Date: 20130313
  Receipt Date: 20130313
  Transmission Date: 20140127
  Serious: Yes (Hospitalization, Other)
  Sender: FDA-Public Use
  Company Number: US-JNJFOC-20130305840

PATIENT
  Age: 20 None
  Sex: Female
  Weight: 78.47 kg

DRUGS (1)
  1. ORTHO EVRA [Suspect]
     Indication: CONTRACEPTION
     Route: 062

REACTIONS (3)
  - Bone disorder [Unknown]
  - Incorrect drug administration duration [Recovered/Resolved]
  - Hypomenorrhoea [Not Recovered/Not Resolved]
